FAERS Safety Report 23744075 (Version 1)
Quarter: 2024Q2

REPORT INFORMATION
  Report Type: Spontaneous
  Country: US (occurrence: US)
  Receive Date: 20240415
  Receipt Date: 20240415
  Transmission Date: 20240716
  Serious: No
  Sender: FDA-Public Use
  Company Number: US-SANOFI-02010889

PATIENT
  Age: 8 Year
  Sex: Male

DRUGS (2)
  1. ADACEL TDAP [Suspect]
     Active Substance: TETANUS TOXOID, REDUCED DIPHTHERIA TOXOID AND ACELLULAR PERTUSSIS VACCINE ADSORBED, TDAP
     Indication: Immunisation
     Dosage: .5 ML
     Route: 023
     Dates: start: 20240409, end: 20240409
  2. TUBERSOL [Suspect]
     Active Substance: TUBERCULIN PURIFIED PROTEIN DERIVATIVE
     Indication: Skin test
     Dosage: UNK
     Route: 065

REACTIONS (3)
  - Product administered to patient of inappropriate age [Unknown]
  - Incorrect route of product administration [Unknown]
  - Wrong product administered [Unknown]

NARRATIVE: CASE EVENT DATE: 20240409
